FAERS Safety Report 11836180 (Version 6)
Quarter: 2016Q2

REPORT INFORMATION
  Report Type: Report from Study
  Country: US (occurrence: US)
  Receive Date: 20151215
  Receipt Date: 20160510
  Transmission Date: 20160815
  Serious: Yes (Hospitalization, Disabling)
  Sender: FDA-Public Use
  Company Number: US-BAYER-2015-485930

PATIENT
  Age: 59 Year
  Sex: Female
  Weight: 62.59 kg

DRUGS (17)
  1. STIVARGA [Suspect]
     Active Substance: REGORAFENIB
     Indication: COLON CANCER METASTATIC
     Dosage: 4 TABLETS DAILY (160 MG)
     Route: 048
     Dates: start: 20151127
  2. SPIRONOLACTONE AND HYDROCHLOROTHIAZIDE [Concomitant]
     Active Substance: HYDROCHLOROTHIAZIDE\SPIRONOLACTONE
  3. IPRATROPIUM [Concomitant]
     Active Substance: IPRATROPIUM
  4. STIVARGA [Suspect]
     Active Substance: REGORAFENIB
     Indication: COLON CANCER METASTATIC
     Dosage: DAILY DOSE 160 MG
     Route: 048
     Dates: start: 20151121, end: 201601
  5. MORPHINE SULFATE. [Concomitant]
     Active Substance: MORPHINE SULFATE
  6. POTASSIUM CHLORIDE. [Concomitant]
     Active Substance: POTASSIUM CHLORIDE
  7. ALBUTEROL. [Concomitant]
     Active Substance: ALBUTEROL
  8. MILK OF MAGNESIA [Concomitant]
     Active Substance: MAGNESIUM HYDROXIDE
  9. ECOTRIN [Concomitant]
     Active Substance: ASPIRIN
  10. LEVOFLOXACIN. [Concomitant]
     Active Substance: LEVOFLOXACIN
  11. NEOSPORIN [METHOXAMINE HYDROCHLORIDE,NEOMYCIN SULFATE,POLYMYXIN B [Concomitant]
  12. OMEPRAZOLE. [Concomitant]
     Active Substance: OMEPRAZOLE
  13. STIVARGA [Suspect]
     Active Substance: REGORAFENIB
     Indication: COLON CANCER METASTATIC
     Dosage: 4 TABLETS DAILY (160 MG)
     Route: 048
     Dates: start: 20151127
  14. TEMAZEPAM. [Concomitant]
     Active Substance: TEMAZEPAM
  15. MIRTAZAPINE. [Concomitant]
     Active Substance: MIRTAZAPINE
  16. FENTANYL. [Concomitant]
     Active Substance: FENTANYL
  17. LORAZEPAM. [Concomitant]
     Active Substance: LORAZEPAM

REACTIONS (15)
  - Activities of daily living impaired [None]
  - Nausea [Not Recovered/Not Resolved]
  - Fatigue [None]
  - Decreased appetite [Not Recovered/Not Resolved]
  - Gastrointestinal sounds abnormal [None]
  - Decreased appetite [None]
  - Lip pain [None]
  - Malaise [Unknown]
  - Abdominal pain upper [None]
  - Drug ineffective [None]
  - Palmar-plantar erythrodysaesthesia syndrome [Unknown]
  - Glossodynia [None]
  - Oral pain [None]
  - Pneumonia [Unknown]
  - Constipation [None]

NARRATIVE: CASE EVENT DATE: 20160118
